FAERS Safety Report 14025994 (Version 6)
Quarter: 2018Q2

REPORT INFORMATION
  Report Type: Spontaneous
  Country: DK (occurrence: DK)
  Receive Date: 20170929
  Receipt Date: 20180605
  Transmission Date: 20180711
  Serious: Yes (Life-Threatening, Hospitalization)
  Sender: FDA-Public Use
  Company Number: DK-B.I. PHARMACEUTICALS,INC./RIDGEFIELD-2017-15-000057

PATIENT
  Age: 85 Year
  Sex: Male
  Weight: 80 kg

DRUGS (6)
  1. SELOZOK [Concomitant]
     Active Substance: METOPROLOL SUCCINATE
     Indication: ARRHYTHMIA
     Dosage: STYRKE: 25 MG
     Route: 048
     Dates: start: 20170612
  2. ENTOCORT [Concomitant]
     Active Substance: BUDESONIDE
     Indication: ENTERITIS
     Dosage: STYRKE: 3 MG.
     Route: 048
     Dates: start: 20170615, end: 20170829
  3. ENTOCORT [Concomitant]
     Active Substance: BUDESONIDE
     Route: 048
     Dates: end: 20170810
  4. PRADAXA [Suspect]
     Active Substance: DABIGATRAN ETEXILATE MESYLATE
     Indication: ATRIAL FIBRILLATION
     Dosage: STYRKE: 110 MG
     Route: 048
     Dates: start: 20170612, end: 20170829
  5. ENTOCORT [Concomitant]
     Active Substance: BUDESONIDE
     Route: 048
     Dates: end: 20170713
  6. CORODIL COMP [Concomitant]
     Active Substance: ENALAPRIL MALEATE\HYDROCHLOROTHIAZIDE
     Indication: HYPERTENSION
     Dosage: STYRKE: 20+12.5 MG
     Route: 048
     Dates: start: 20130610

REACTIONS (3)
  - Tubulointerstitial nephritis [Recovered/Resolved]
  - Acute kidney injury [Recovered/Resolved]
  - Blood creatinine increased [Recovered/Resolved]

NARRATIVE: CASE EVENT DATE: 201708
